FAERS Safety Report 9984157 (Version 1)
Quarter: 2014Q1

REPORT INFORMATION
  Report Type: Report from Study
  Country: US (occurrence: US)
  Receive Date: 20140307
  Receipt Date: 20140307
  Transmission Date: 20141002
  Serious: No
  Sender: FDA-Public Use
  Company Number: US-ABBVIE-13P-163-1182313-00

PATIENT
  Age: 26 Year
  Sex: Female
  Weight: 65.83 kg

DRUGS (19)
  1. HUMIRA [Suspect]
     Indication: RHEUMATOID ARTHRITIS
     Route: 058
     Dates: start: 2012
  2. HUMIRA [Suspect]
     Indication: ANKYLOSING SPONDYLITIS
  3. WELLBUTRIN [Concomitant]
     Indication: PRODUCT USED FOR UNKNOWN INDICATION
  4. LORAZEPAM [Concomitant]
     Indication: PRODUCT USED FOR UNKNOWN INDICATION
  5. DEXILANT [Concomitant]
     Indication: PRODUCT USED FOR UNKNOWN INDICATION
  6. BETHANECHOL [Concomitant]
     Indication: PRODUCT USED FOR UNKNOWN INDICATION
  7. ZYRTEC [Concomitant]
     Indication: PRODUCT USED FOR UNKNOWN INDICATION
  8. SINGULAIR [Concomitant]
     Indication: PRODUCT USED FOR UNKNOWN INDICATION
  9. FLONASE [Concomitant]
     Indication: PRODUCT USED FOR UNKNOWN INDICATION
  10. CLONAZEPAM [Concomitant]
     Indication: PRODUCT USED FOR UNKNOWN INDICATION
  11. SPIRONOLACTONE [Concomitant]
     Indication: PRODUCT USED FOR UNKNOWN INDICATION
  12. CONTRACEPTIVES [Concomitant]
     Indication: PRODUCT USED FOR UNKNOWN INDICATION
  13. COLON CLEANSE [Concomitant]
     Indication: PRODUCT USED FOR UNKNOWN INDICATION
  14. GINGER [Concomitant]
     Indication: PRODUCT USED FOR UNKNOWN INDICATION
  15. VITAMIN D [Concomitant]
     Indication: PRODUCT USED FOR UNKNOWN INDICATION
  16. PAPUA [Concomitant]
     Indication: PRODUCT USED FOR UNKNOWN INDICATION
  17. TUMS [Concomitant]
     Indication: PRODUCT USED FOR UNKNOWN INDICATION
  18. MELOXICAM [Concomitant]
     Indication: PRODUCT USED FOR UNKNOWN INDICATION
  19. STOOL SOFTENER [Concomitant]
     Indication: PRODUCT USED FOR UNKNOWN INDICATION

REACTIONS (1)
  - Ankylosing spondylitis [Not Recovered/Not Resolved]
